FAERS Safety Report 21928648 (Version 6)
Quarter: 2024Q3

REPORT INFORMATION
  Report Type: Spontaneous
  Country: JP (occurrence: JP)
  Receive Date: 20230130
  Receipt Date: 20240703
  Transmission Date: 20241017
  Serious: Yes (Death)
  Sender: ABBVIE
  Company Number: JP-ABBVIE-4288986

PATIENT
  Age: 71 Year
  Sex: Female
  Weight: 28 kg

DRUGS (2)
  1. CARBIDOPA\LEVODOPA [Suspect]
     Active Substance: CARBIDOPA\LEVODOPA
     Indication: Product used for unknown indication
     Route: 050
  2. CARBIDOPA\LEVODOPA [Suspect]
     Active Substance: CARBIDOPA\LEVODOPA

REACTIONS (5)
  - Dehydration [Fatal]
  - General physical health deterioration [Fatal]
  - Speech disorder [Unknown]
  - Hypophagia [Unknown]
  - Cachexia [Fatal]
